FAERS Safety Report 6030654-8 (Version None)
Quarter: 2009Q1

REPORT INFORMATION
  Report Type: 
  Country: None (occurrence: None)
  Receive Date: 20090107
  Receipt Date: 20081229
  Transmission Date: 20090719
  Serious: Yes (Other)
  Sender: FDA-Public Use
  Company Number: FR-KINGPHARMUSA00001-K200801455

PATIENT
  Age: 40 Year
  Sex: Female

DRUGS (1)
  1. SEPTRA [Suspect]
     Indication: VAGINAL INFECTION

REACTIONS (14)
  - ACUTE FEBRILE NEUTROPHILIC DERMATOSIS [None]
  - ALPHA 2 GLOBULIN INCREASED [None]
  - BLISTER [None]
  - C-REACTIVE PROTEIN INCREASED [None]
  - CHEILITIS [None]
  - CONJUNCTIVITIS [None]
  - COUGH [None]
  - DRUG ERUPTION [None]
  - EYELID OEDEMA [None]
  - ORAL MUCOSAL ERUPTION [None]
  - PYREXIA [None]
  - RASH ERYTHEMATOUS [None]
  - RED BLOOD CELL SEDIMENTATION RATE INCREASED [None]
  - WHITE BLOOD CELL COUNT INCREASED [None]
